FAERS Safety Report 7512460-8 (Version None)
Quarter: 2011Q2

REPORT INFORMATION
  Report Type: 
  Country: None (occurrence: None)
  Receive Date: 20110520
  Receipt Date: 20110503
  Transmission Date: 20111010
  Serious: Yes (Hospitalization)
  Sender: FDA-Public Use
  Company Number: 2010000162

PATIENT
  Age: 73 Year
  Sex: Male
  Weight: 95.4 kg

DRUGS (23)
  1. SIMVASTATIN [Concomitant]
  2. PERINDOPRIL (PERINDOPRIL) [Concomitant]
  3. AQUEOUS CREAM (AQUEOUS CREAM) [Concomitant]
  4. RANITIDINE [Concomitant]
  5. BUSCOPAN (HYOSCINE BUTULBROMIDE) [Concomitant]
  6. LOPERAMIDE [Concomitant]
  7. SORAFENIB (TABLET) [Suspect]
     Indication: HEPATIC NEOPLASM MALIGNANT
     Dosage: 800 MG, BID, ORAL
     Route: 048
     Dates: start: 20091013, end: 20091102
  8. SORAFENIB (TABLET) [Suspect]
     Indication: HEPATIC NEOPLASM MALIGNANT
     Dosage: 800 MG, BID, ORAL
     Route: 048
     Dates: start: 20091103, end: 20091123
  9. SORAFENIB (TABLET) [Suspect]
     Indication: HEPATIC NEOPLASM MALIGNANT
     Dosage: 800 MG, BID, ORAL
     Route: 048
     Dates: start: 20091211, end: 20091214
  10. SORAFENIB (TABLET) [Suspect]
     Indication: HEPATIC NEOPLASM MALIGNANT
     Dosage: 800 MG, BID, ORAL
     Route: 048
     Dates: start: 20090922, end: 20091012
  11. SORAFENIB (TABLET) [Suspect]
     Indication: HEPATIC NEOPLASM MALIGNANT
     Dosage: 800 MG, BID, ORAL
     Route: 048
     Dates: start: 20091124, end: 20091210
  12. MIDAZOLAM (MIDAZOLAM) [Concomitant]
  13. GABAPENTIN [Concomitant]
  14. ASPIRIN [Concomitant]
  15. SPIRONOLACTONE [Concomitant]
  16. ENEMA (PHOSPHORIC ACID) [Concomitant]
  17. ERLOTINIB HYDROCHLORIDE [Suspect]
     Indication: HEPATIC NEOPLASM MALIGNANT
     Dosage: 150 MG, QD, ORAL
     Route: 048
     Dates: start: 20091124, end: 20091210
  18. ERLOTINIB HYDROCHLORIDE [Suspect]
     Indication: HEPATIC NEOPLASM MALIGNANT
     Dosage: 150 MG, QD, ORAL
     Route: 048
     Dates: start: 20091211, end: 20091214
  19. ERLOTINIB HYDROCHLORIDE [Suspect]
     Indication: HEPATIC NEOPLASM MALIGNANT
     Dosage: 150 MG, QD, ORAL
     Route: 048
     Dates: start: 20090922, end: 20091012
  20. ERLOTINIB HYDROCHLORIDE [Suspect]
     Indication: HEPATIC NEOPLASM MALIGNANT
     Dosage: 150 MG, QD, ORAL
     Route: 048
     Dates: start: 20091013, end: 20091102
  21. ERLOTINIB HYDROCHLORIDE [Suspect]
     Indication: HEPATIC NEOPLASM MALIGNANT
     Dosage: 150 MG, QD, ORAL
     Route: 048
     Dates: start: 20091103, end: 20091123
  22. CEPHALEXIN [Concomitant]
  23. HYOSCINE HBR HYT [Concomitant]

REACTIONS (5)
  - ANAEMIA [None]
  - DIVERTICULUM [None]
  - DIARRHOEA [None]
  - RECTAL HAEMORRHAGE [None]
  - HAEMORRHOIDS [None]
